FAERS Safety Report 6504300-0 (Version None)
Quarter: 2009Q4

REPORT INFORMATION
  Report Type: 
  Country: None (occurrence: None)
  Receive Date: 20091217
  Receipt Date: 20091207
  Transmission Date: 20100525
  Serious: Yes (Other)
  Sender: FDA-Public Use
  Company Number: US-SANOFI-AVENTIS-2009SA008217

PATIENT

DRUGS (1)
  1. ELIGARD [Suspect]
     Route: 051

REACTIONS (1)
  - NECROSIS [None]
